FAERS Safety Report 5760233-9 (Version None)
Quarter: 2008Q2

REPORT INFORMATION
  Report Type: 
  Country: None (occurrence: None)
  Receive Date: 20080602
  Receipt Date: 20080526
  Transmission Date: 20081010
  Serious: Yes (Hospitalization)
  Sender: FDA-Public Use
  Company Number: 2007SP012148

PATIENT
  Age: 48 Year
  Sex: Male

DRUGS (2)
  1. PEG-INTRON [Suspect]
     Indication: HEPATITIS C
     Dosage: 100 MCG;QW;SC
     Route: 058
     Dates: start: 20060907, end: 20070412
  2. REBETOL [Suspect]
     Indication: HEPATITIS C
     Dosage: 800 MG; QW;PO
     Route: 048
     Dates: start: 20060907, end: 20070101

REACTIONS (2)
  - RETINAL DETACHMENT [None]
  - VOGT-KOYANAGI-HARADA SYNDROME [None]
